FAERS Safety Report 11968716 (Version 1)
Quarter: 2016Q1

REPORT INFORMATION
  Report Type: Spontaneous
  Country: US (occurrence: US)
  Receive Date: 20160128
  Receipt Date: 20160128
  Transmission Date: 20160526
  Serious: Yes (Other)
  Sender: FDA-Public Use
  Company Number: US-BEH-2016058000

PATIENT
  Age: 45 Year
  Sex: Female
  Weight: 117 kg

DRUGS (29)
  1. OLANZAPINE. [Concomitant]
     Active Substance: OLANZAPINE
  2. MOMETASONE [Concomitant]
     Active Substance: MOMETASONE
  3. FAMOTIDINE. [Concomitant]
     Active Substance: FAMOTIDINE
  4. DIAZEPAM. [Concomitant]
     Active Substance: DIAZEPAM
  5. ACETAMINOPHEN. [Concomitant]
     Active Substance: ACETAMINOPHEN
  6. SODIUM CHLORIDE. [Concomitant]
     Active Substance: SODIUM CHLORIDE
  7. TRAMADOL. [Concomitant]
     Active Substance: TRAMADOL
  8. METHOTREXATE [Concomitant]
     Active Substance: METHOTREXATE
  9. PRIVIGEN [Suspect]
     Active Substance: HUMAN IMMUNOGLOBULIN G
     Indication: CHRONIC INFLAMMATORY DEMYELINATING POLYRADICULONEUROPATHY
     Dosage: 20 GM VIALS
     Route: 042
  10. HEPARIN [Concomitant]
     Active Substance: HEPARIN SODIUM
  11. ASPIRIN. [Concomitant]
     Active Substance: ASPIRIN
  12. MAGNESIUM [Concomitant]
     Active Substance: MAGNESIUM
  13. FLUOXETINE [Concomitant]
     Active Substance: FLUOXETINE HYDROCHLORIDE
  14. NYSTATIN. [Concomitant]
     Active Substance: NYSTATIN
  15. VITAMIN D2 [Concomitant]
     Active Substance: ERGOCALCIFEROL
  16. ALLEGRA [Concomitant]
     Active Substance: FEXOFENADINE HYDROCHLORIDE
  17. FOLIC ACID. [Concomitant]
     Active Substance: FOLIC ACID
  18. FLUCONAZOLE. [Concomitant]
     Active Substance: FLUCONAZOLE
  19. CEFTIN [Concomitant]
     Active Substance: CEFUROXIME AXETIL
  20. ALEVE [Concomitant]
     Active Substance: NAPROXEN SODIUM
  21. NEXIUM [Concomitant]
     Active Substance: ESOMEPRAZOLE MAGNESIUM
  22. CYANOCOBALAMIN. [Concomitant]
     Active Substance: CYANOCOBALAMIN
  23. CELECOXIB. [Concomitant]
     Active Substance: CELECOXIB
  24. CIPRO [Concomitant]
     Active Substance: CIPROFLOXACIN HYDROCHLORIDE
  25. DIPHENHYDRAMINE. [Concomitant]
     Active Substance: DIPHENHYDRAMINE
  26. EPIPEN [Concomitant]
     Active Substance: EPINEPHRINE
  27. MONTELUKAST [Concomitant]
     Active Substance: MONTELUKAST SODIUM
  28. PROVENTIL [Concomitant]
     Active Substance: ALBUTEROL
  29. SPIRONOLACTONE. [Concomitant]
     Active Substance: SPIRONOLACTONE

REACTIONS (3)
  - Kidney infection [Unknown]
  - Cystitis [Unknown]
  - Otitis externa [Unknown]

NARRATIVE: CASE EVENT DATE: 20160104
